FAERS Safety Report 5110076-4 (Version None)
Quarter: 2006Q3

REPORT INFORMATION
  Report Type: 
  Country: None (occurrence: None)
  Receive Date: 20060919
  Receipt Date: 20060919
  Transmission Date: 20061208
  Serious: Yes (Other)
  Sender: FDA-Public Use
  Company Number: None

PATIENT
  Age: 80 Year
  Sex: Female
  Weight: 70.3075 kg

DRUGS (5)
  1. LIDODERM [Suspect]
     Indication: BACK PAIN
     Dosage: 1 PATCH   DAILY   TRANSDERMAL
     Route: 062
     Dates: start: 20050310, end: 20060915
  2. MONOPRIL [Concomitant]
  3. DOXYCYCLINE [Concomitant]
  4. CALCIUM GLUCONATE [Concomitant]
  5. VITAMIN B COMPLEX CAP [Concomitant]

REACTIONS (11)
  - ANXIETY [None]
  - ASTHENIA [None]
  - CHOKING [None]
  - CONFUSIONAL STATE [None]
  - DISORIENTATION [None]
  - DIZZINESS [None]
  - DYSPNOEA [None]
  - EUPHORIC MOOD [None]
  - HEART RATE INCREASED [None]
  - MEMORY IMPAIRMENT [None]
  - NERVOUSNESS [None]
